FAERS Safety Report 6591159-9 (Version None)
Quarter: 2010Q1

REPORT INFORMATION
  Report Type: 
  Country: None (occurrence: None)
  Receive Date: 20100219
  Receipt Date: 20091214
  Transmission Date: 20100710
  Serious: No
  Sender: FDA-Public Use
  Company Number: US-BRISTOL-MYERS SQUIBB COMPANY-14894471

PATIENT
  Age: 3 Decade
  Sex: Female

DRUGS (1)
  1. KENALOG [Suspect]
     Indication: SCAR
     Route: 023

REACTIONS (1)
  - URTICARIA [None]
